FAERS Safety Report 25465164 (Version 8)
Quarter: 2025Q4

REPORT INFORMATION
  Report Type: Report from Study
  Country: PR (occurrence: PR)
  Receive Date: 20250622
  Receipt Date: 20251111
  Transmission Date: 20260117
  Serious: Yes (Hospitalization, Other)
  Sender: ABBVIE
  Company Number: PR-ABBVIE-6138248

PATIENT
  Age: 53 Year
  Sex: Female
  Weight: 82.1 kg

DRUGS (28)
  1. VENCLEXTA [Suspect]
     Active Substance: VENETOCLAX
     Indication: Chronic lymphocytic leukaemia
     Route: 048
     Dates: start: 20221022
  2. VENCLEXTA [Suspect]
     Active Substance: VENETOCLAX
     Indication: Chronic lymphocytic leukaemia
     Dosage: LAST ADMIN DATE: 2025
     Route: 048
     Dates: start: 2025
  3. VENCLEXTA [Suspect]
     Active Substance: VENETOCLAX
     Indication: Chronic lymphocytic leukaemia
     Dosage: DRUG END DATE-OCT-2022
     Route: 048
     Dates: start: 20221017
  4. VENCLEXTA [Suspect]
     Active Substance: VENETOCLAX
     Indication: Chronic lymphocytic leukaemia
     Dosage: FORM STRENGTH: 100 MG
     Route: 048
     Dates: start: 202501, end: 20250214
  5. VENCLEXTA [Suspect]
     Active Substance: VENETOCLAX
     Indication: Chronic lymphocytic leukaemia
     Dosage: FREQUENCY- 3 IN 30 DAYS, FORM STRENGTH: 100 MG, FIRST AND LAST ADMIN DATE WAS IN 2025
     Route: 048
  6. VENCLEXTA [Suspect]
     Active Substance: VENETOCLAX
     Indication: Chronic lymphocytic leukaemia
     Dosage: FREQUENCY- 1 IN 28 DAYS, FORM STRENGTH: 100 MILLIGRAM
     Route: 048
     Dates: start: 20250214
  7. VITAMIN C [Concomitant]
     Active Substance: ASCORBIC ACID
     Indication: Vitamin supplementation
     Route: 048
  8. VITAMIN D3 [Concomitant]
     Active Substance: CHOLECALCIFEROL
     Indication: Product used for unknown indication
     Dosage: EXTRA STRENGTH, 25MCG
     Route: 048
  9. FAMOTIDINE [Concomitant]
     Active Substance: FAMOTIDINE
     Indication: Gastrointestinal disorder
     Route: 048
  10. LACTOBACILLUS ACIDOPHILUS [Concomitant]
     Active Substance: LACTOBACILLUS ACIDOPHILUS
     Indication: Gastrointestinal disorder
     Route: 048
  11. RESTORIL [Concomitant]
     Active Substance: TEMAZEPAM
     Indication: Sleep disorder
     Route: 048
  12. ALLOPURINOL [Concomitant]
     Active Substance: ALLOPURINOL
     Indication: Product used for unknown indication
     Dosage: 300 MG
     Route: 048
  13. PROTONIX [Concomitant]
     Active Substance: PANTOPRAZOLE SODIUM
     Indication: Gastrointestinal disorder
     Dosage: DELAYED RELEASE
     Route: 048
  14. LISINOPRIL [Concomitant]
     Active Substance: LISINOPRIL
     Indication: Blood pressure measurement
     Dosage: DOSAGE: 20 MG
     Route: 048
  15. Triple omega 3 6 9 [Concomitant]
     Indication: Product used for unknown indication
     Route: 048
  16. VITAMIN E [Concomitant]
     Active Substance: .ALPHA.-TOCOPHEROL
     Indication: Vitamin supplementation
     Dosage: DOSAGE: 400 MG
     Route: 048
  17. TEMAZEPAM [Concomitant]
     Active Substance: TEMAZEPAM
     Indication: Product used for unknown indication
     Route: 048
  18. IRON [Concomitant]
     Active Substance: IRON
     Indication: Product used for unknown indication
  19. MAGNESIUM OXIDE [Concomitant]
     Active Substance: MAGNESIUM OXIDE
     Indication: Product used for unknown indication
     Dosage: ANTACID
     Route: 048
  20. NAPROXEN [Concomitant]
     Active Substance: NAPROXEN
     Indication: Product used for unknown indication
  21. OMEGA 3 [Concomitant]
     Active Substance: CAPSAICIN
     Indication: Supplementation therapy
  22. MOTRIN [Concomitant]
     Active Substance: IBUPROFEN
     Indication: Product used for unknown indication
  23. TRUXIMA [Concomitant]
     Active Substance: RITUXIMAB-ABBS
     Indication: Product used for unknown indication
     Dosage: DOSAGE: 100 MG
  24. DEXAMETHASONE [Concomitant]
     Active Substance: DEXAMETHASONE
     Indication: Product used for unknown indication
  25. DIPHENHYDRAMINE [Concomitant]
     Active Substance: DIPHENHYDRAMINE
     Indication: Product used for unknown indication
  26. Lonopin [Concomitant]
     Indication: Product used for unknown indication
     Route: 048
  27. PROZAC [Concomitant]
     Active Substance: FLUOXETINE HYDROCHLORIDE
     Indication: Product used for unknown indication
     Route: 048
  28. KLONOPIN [Concomitant]
     Active Substance: CLONAZEPAM
     Indication: Product used for unknown indication
     Route: 048

REACTIONS (30)
  - Colitis [Recovered/Resolved]
  - Skin discolouration [Unknown]
  - Toothache [Recovering/Resolving]
  - Tooth extraction [Recovered/Resolved]
  - Depressed mood [Unknown]
  - Fatigue [Recovering/Resolving]
  - Fatigue [Recovered/Resolved]
  - Aphthous ulcer [Not Recovered/Not Resolved]
  - Constipation [Recovering/Resolving]
  - Abscess oral [Recovering/Resolving]
  - Feeling hot [Recovering/Resolving]
  - Weight increased [Recovering/Resolving]
  - Abdominal pain upper [Recovering/Resolving]
  - Nausea [Recovering/Resolving]
  - Asthenia [Recovering/Resolving]
  - Diarrhoea [Recovered/Resolved]
  - Malaise [Unknown]
  - Salmonellosis [Recovering/Resolving]
  - Paraesthesia [Recovering/Resolving]
  - Pain in extremity [Recovering/Resolving]
  - Arthralgia [Recovering/Resolving]
  - Rash macular [Recovering/Resolving]
  - Abdominal discomfort [Recovering/Resolving]
  - Bone pain [Recovering/Resolving]
  - Chloasma [Recovering/Resolving]
  - Fall [Unknown]
  - Hand fracture [Recovering/Resolving]
  - Flushing [Recovering/Resolving]
  - Neck pain [Recovering/Resolving]
  - Fungal skin infection [Recovering/Resolving]

NARRATIVE: CASE EVENT DATE: 20250101
